FAERS Safety Report 26177346 (Version 1)
Quarter: 2025Q4

REPORT INFORMATION
  Report Type: Spontaneous
  Country: US (occurrence: US)
  Receive Date: 20251219
  Receipt Date: 20251219
  Transmission Date: 20260118
  Serious: No
  Sender: SANOFI AVENTIS
  Company Number: US-SA-2025SA374996

PATIENT
  Sex: Male
  Weight: 106.82 kg

DRUGS (5)
  1. DUPIXENT [Suspect]
     Active Substance: DUPILUMAB
     Dosage: 300 MG, QOW
     Route: 058
  2. EZETIMIBE [Concomitant]
     Active Substance: EZETIMIBE
     Dosage: UNK
  3. TICAGRELOR [Concomitant]
     Active Substance: TICAGRELOR
     Dosage: UNK
  4. PEG 3350 [Concomitant]
     Active Substance: POLYETHYLENE GLYCOL 3350
     Dosage: UNK
  5. TERAZOSIN [Concomitant]
     Active Substance: TERAZOSIN HYDROCHLORIDE
     Dosage: UNK

REACTIONS (3)
  - Asthenia [Unknown]
  - Fatigue [Unknown]
  - Initial insomnia [Unknown]
